FAERS Safety Report 8867525 (Version 1)
Quarter: 2012Q4

REPORT INFORMATION
  Report Type: 
  Country: US (occurrence: US)
  Receive Date: 20121025
  Receipt Date: 20121025
  Transmission Date: 20130627
  Serious: No
  Sender: FDA-Public Use
  Company Number: US-AMGEN-USASP2012017265

PATIENT
  Sex: Female
  Weight: 68.03 kg

DRUGS (8)
  1. ENBREL [Suspect]
     Indication: PRODUCT USED FOR UNKNOWN INDICATION
     Dosage: 50 mg, qwk
     Route: 058
  2. MULTI-VIT [Concomitant]
     Dosage: UNK
  3. CELEBREX [Concomitant]
     Dosage: 100 mg, UNK
  4. VITAMIN C                          /00008001/ [Concomitant]
     Dosage: 500 mg, UNK
  5. VITAMIN E                          /00110501/ [Concomitant]
     Dosage: 1000 IU, UNK
  6. VITAMIN D /00107901/ [Concomitant]
     Dosage: 1000 IU, UNK
  7. CALCIUM [Concomitant]
     Dosage: UNK
  8. GLUCOSAMINE/CHONDROITIN            /01625901/ [Concomitant]
     Dosage: UNK

REACTIONS (3)
  - Injection site pruritus [Unknown]
  - Injection site erythema [Unknown]
  - Injection site bruising [Unknown]
